FAERS Safety Report 12460397 (Version 3)
Quarter: 2016Q3

REPORT INFORMATION
  Report Type: Report from Study
  Country: US (occurrence: US)
  Receive Date: 20160613
  Receipt Date: 20160715
  Transmission Date: 20161109
  Serious: Yes (Hospitalization)
  Sender: FDA-Public Use
  Company Number: US-JNJFOC-20160324748

PATIENT
  Age: 76 Year
  Sex: Female

DRUGS (17)
  1. IMBRUVICA [Suspect]
     Active Substance: IBRUTINIB
     Indication: CHRONIC LYMPHOCYTIC LEUKAEMIA
     Route: 048
     Dates: start: 20160304, end: 2016
  2. ZYLOPRIM [Concomitant]
     Active Substance: ALLOPURINOL
  3. COREG CR [Concomitant]
     Active Substance: CARVEDILOL PHOSPHATE
  4. FOLIC ACID. [Concomitant]
     Active Substance: FOLIC ACID
  5. GLUCOPHAGE [Concomitant]
     Active Substance: METFORMIN HYDROCHLORIDE
     Indication: DIABETES MELLITUS
  6. REMERON [Concomitant]
     Active Substance: MIRTAZAPINE
  7. MAGNESIUM [Concomitant]
     Active Substance: MAGNESIUM
     Indication: BLOOD MAGNESIUM DECREASED
  8. POTASSIUM [Concomitant]
     Active Substance: POTASSIUM
     Indication: ELECTROLYTE SUBSTITUTION THERAPY
  9. IMBRUVICA [Suspect]
     Active Substance: IBRUTINIB
     Indication: CHRONIC LYMPHOCYTIC LEUKAEMIA
     Route: 048
     Dates: start: 20160318, end: 20160531
  10. CALCIUM VITAMIN D3 [Concomitant]
  11. ZESTORETIC [Concomitant]
     Active Substance: HYDROCHLOROTHIAZIDE\LISINOPRIL
  12. VICTOZA [Concomitant]
     Active Substance: LIRAGLUTIDE
     Indication: DIABETES MELLITUS
  13. LASIX [Concomitant]
     Active Substance: FUROSEMIDE
     Indication: OEDEMA
  14. ZAROXOLYN [Concomitant]
     Active Substance: METOLAZONE
  15. AMARYL [Concomitant]
     Active Substance: GLIMEPIRIDE
     Indication: DIABETES MELLITUS
  16. IMDUR [Concomitant]
     Active Substance: ISOSORBIDE MONONITRATE
  17. PRAVASTATIN. [Concomitant]
     Active Substance: PRAVASTATIN
     Indication: BLOOD CHOLESTEROL INCREASED

REACTIONS (14)
  - Arthralgia [Not Recovered/Not Resolved]
  - Back pain [Recovering/Resolving]
  - Cough [Unknown]
  - Atrial fibrillation [Recovering/Resolving]
  - Paranasal sinus hypersecretion [Unknown]
  - Chest pain [Recovering/Resolving]
  - Cardiac failure congestive [Recovering/Resolving]
  - Diarrhoea [Not Recovered/Not Resolved]
  - Hypersensitivity [Unknown]
  - Productive cough [Unknown]
  - Weight decreased [Unknown]
  - Pain in extremity [Recovered/Resolved]
  - Pulmonary oedema [Recovered/Resolved]
  - Dizziness [Unknown]

NARRATIVE: CASE EVENT DATE: 2016
